FAERS Safety Report 22314084 (Version 2)
Quarter: 2023Q2

REPORT INFORMATION
  Report Type: Spontaneous
  Country: ES (occurrence: ES)
  Receive Date: 20230512
  Receipt Date: 20230518
  Transmission Date: 20230721
  Serious: Yes (Other)
  Sender: FDA-Public Use
  Company Number: ES-EXELIXIS-CABO-23063605

PATIENT
  Age: 71 Year
  Sex: Male

DRUGS (5)
  1. CABOMETYX [Suspect]
     Active Substance: CABOZANTINIB S-MALATE
     Indication: Clear cell renal cell carcinoma
     Dosage: 60 MG
     Route: 065
     Dates: start: 2021
  2. CABOMETYX [Suspect]
     Active Substance: CABOZANTINIB S-MALATE
     Dosage: 40 MG
     Route: 065
     Dates: start: 2021
  3. CABOMETYX [Suspect]
     Active Substance: CABOZANTINIB S-MALATE
     Dosage: 20 MG
     Route: 065
     Dates: start: 2021
  4. NIVOLUMAB [Concomitant]
     Active Substance: NIVOLUMAB
     Dosage: UNK
     Dates: start: 2022
  5. AXITINIB [Concomitant]
     Active Substance: AXITINIB
     Dosage: UNK

REACTIONS (11)
  - Metastases to pancreas [Unknown]
  - Malignant neoplasm progression [Unknown]
  - Lung disorder [Unknown]
  - Drug intolerance [Unknown]
  - Adrenal disorder [Unknown]
  - Nodule [Unknown]
  - Pulmonary mass [Unknown]
  - Hilar lymphadenopathy [Unknown]
  - Adrenal mass [Unknown]
  - Pleural effusion [Unknown]
  - Asthenia [Not Recovered/Not Resolved]

NARRATIVE: CASE EVENT DATE: 20210501
